FAERS Safety Report 7336041-4 (Version None)
Quarter: 2011Q1

REPORT INFORMATION
  Report Type: 
  Country: None (occurrence: None)
  Receive Date: 20110228
  Receipt Date: 20110223
  Transmission Date: 20110831
  Serious: Yes (Hospitalization)
  Sender: FDA-Public Use
  Company Number: 1000017627

PATIENT
  Age: 77 Year
  Sex: Female

DRUGS (17)
  1. METHYLDOPA [Concomitant]
  2. DOCUSATE SODIUM (DOCUSATE SODIUM) [Concomitant]
  3. BYSTOLIC [Suspect]
     Indication: HYPERTENSION
     Dosage: 10 MG (10 MG, 1 IN 1 D), ORAL
     Route: 048
     Dates: start: 20100816, end: 20101003
  4. COMTAN [Concomitant]
  5. ALBUTEROL [Concomitant]
  6. TEKTURNA [Concomitant]
  7. LASIX [Concomitant]
  8. AMITRIPTULINE (AMITRIPTYLINE) [Concomitant]
  9. COREG [Concomitant]
  10. KLOR-CON [Concomitant]
  11. SINEMET [Concomitant]
  12. SEROQUEL [Concomitant]
  13. WELLBUTRIN XL [Concomitant]
  14. SYNTHROID [Concomitant]
  15. ASPIRIN [Concomitant]
  16. METFORMIN (METFORMIN) [Concomitant]
  17. MULTIVITAMIN (MULTIVITAMIN) [Concomitant]

REACTIONS (2)
  - PARKINSON'S DISEASE [None]
  - CONDITION AGGRAVATED [None]
